FAERS Safety Report 8400843-3 (Version None)
Quarter: 2012Q2

REPORT INFORMATION
  Report Type: 
  Country: None (occurrence: None)
  Receive Date: 20120601
  Receipt Date: 20120522
  Transmission Date: 20120825
  Serious: Yes (Hospitalization)
  Sender: FDA-Public Use
  Company Number: FR-B.I. PHARMACEUTICALS,INC./RIDGEFIELD-2012-FF-00606FF

PATIENT
  Sex: Female

DRUGS (2)
  1. PRADAXA [Suspect]
     Indication: ATRIAL FIBRILLATION
     Dosage: 220 MG
     Route: 048
     Dates: start: 20120201, end: 20120414
  2. CORDARONE [Suspect]
     Indication: ATRIAL FLUTTER
     Dosage: ONCE DAILY 5DAYS A WEEK
     Route: 048

REACTIONS (4)
  - HAEMORRHAGIC ANAEMIA [None]
  - RENAL FAILURE [None]
  - MELAENA [None]
  - RECTAL HAEMORRHAGE [None]
